FAERS Safety Report 16692857 (Version 1)
Quarter: 2019Q3

REPORT INFORMATION
  Report Type: Spontaneous
  Country: NO (occurrence: NO)
  Receive Date: 20190812
  Receipt Date: 20190812
  Transmission Date: 20191004
  Serious: Yes (Life-Threatening, Hospitalization, Other)
  Sender: FDA-Public Use
  Company Number: NO-MYLANLABS-2019M1073879

PATIENT
  Age: 22 Year
  Sex: Female
  Weight: 55 kg

DRUGS (3)
  1. AMIODARONE [Suspect]
     Active Substance: AMIODARONE
     Indication: PULSELESS ELECTRICAL ACTIVITY
     Dosage: 300 MILLIGRAM
     Route: 042
  2. EPINEPHRINE. [Suspect]
     Active Substance: EPINEPHRINE
     Indication: PULSELESS ELECTRICAL ACTIVITY
     Dosage: EPINEPHRINE 1MG IV TWICE
     Route: 042
  3. ATROPINE. [Suspect]
     Active Substance: ATROPINE
     Indication: PULSELESS ELECTRICAL ACTIVITY
     Dosage: 1 MILLIGRAM
     Route: 042

REACTIONS (1)
  - Drug ineffective [Recovered/Resolved]
